FAERS Safety Report 25140553 (Version 1)
Quarter: 2025Q1

REPORT INFORMATION
  Report Type: Spontaneous
  Country: US (occurrence: US)
  Receive Date: 20250331
  Receipt Date: 20250331
  Transmission Date: 20250408
  Serious: No
  Sender: GE HEALTHCARE
  Company Number: US-GE HEALTHCARE-2025CSU003480

PATIENT
  Age: 52 Year
  Sex: Female

DRUGS (1)
  1. OMNIPAQUE [Suspect]
     Active Substance: IOHEXOL
     Indication: Computerised tomogram abdomen
     Route: 042
     Dates: start: 20250320, end: 20250320

REACTIONS (3)
  - Chest discomfort [Recovered/Resolved]
  - Throat tightness [Recovered/Resolved]
  - Paraesthesia oral [Recovered/Resolved]

NARRATIVE: CASE EVENT DATE: 20250320
